FAERS Safety Report 4675744-7 (Version None)
Quarter: 2005Q2

REPORT INFORMATION
  Report Type: 
  Country: None (occurrence: None)
  Receive Date: 20050527
  Receipt Date: 20050314
  Transmission Date: 20051028
  Serious: Yes (Disabling)
  Sender: FDA-Public Use
  Company Number: US-BRISTOL-MYERS SQUIBB COMPANY-12896858

PATIENT
  Age: 77 Year
  Sex: Male
  Weight: 93 kg

DRUGS (6)
  1. ERBITUX [Suspect]
     Indication: COLORECTAL CANCER METASTATIC
     Dosage: TOTAL OF 9 DOSES ADMINISTERED.  DOSE REDUCED FROM 500 MG TO 300 MG ON 21-FEB-2005.
     Route: 042
     Dates: start: 20050117, end: 20050117
  2. IRINOTECAN HCL [Suspect]
     Indication: COLORECTAL CANCER METASTATIC
     Dosage: DISCONTINUED ON 17-JAN-2005.  PATIENT RECEIVED FOR A TOTAL OF 2 WEEKS.
     Route: 042
     Dates: start: 20050110, end: 20050117
  3. ALOXI [Concomitant]
  4. BENADRYL [Concomitant]
  5. DECADRON [Concomitant]
  6. NEURONTIN [Concomitant]
     Dates: start: 20050214

REACTIONS (3)
  - DERMATITIS ACNEIFORM [None]
  - DIARRHOEA [None]
  - NEUROPATHY PERIPHERAL [None]
